FAERS Safety Report 10047556 (Version 1)
Quarter: 2014Q1

REPORT INFORMATION
  Report Type: Spontaneous
  Country: US (occurrence: None)
  Receive Date: 20140328
  Receipt Date: 20140328
  Transmission Date: 20141002
  Serious: Yes (Other)
  Sender: FDA-Public Use
  Company Number: None

PATIENT
  Age: 46 Year
  Sex: Female
  Weight: 61.24 kg

DRUGS (2)
  1. ULTRAM [Suspect]
     Indication: FIBROMYALGIA
     Dates: start: 20080901, end: 20140327
  2. GABAPENTIN [Concomitant]

REACTIONS (1)
  - Drug ineffective [None]
